FAERS Safety Report 23027812 (Version 1)
Quarter: 2023Q4

REPORT INFORMATION
  Report Type: Spontaneous
  Country: US (occurrence: None)
  Receive Date: 20231004
  Receipt Date: 20231004
  Transmission Date: 20240110
  Serious: Yes (Death, Hospitalization)
  Sender: FDA-Public Use
  Company Number: None

PATIENT
  Sex: Female
  Weight: 59.1 kg

DRUGS (2)
  1. GEMCITABINE HYDROCHLORIDE [Suspect]
     Active Substance: GEMCITABINE HYDROCHLORIDE
     Dates: end: 20230531
  2. PACLITAXEL [Suspect]
     Active Substance: PACLITAXEL
     Dates: end: 20230531

REACTIONS (13)
  - Disease progression [None]
  - Sepsis [None]
  - Hypotension [None]
  - Dehydration [None]
  - Pneumonia aspiration [None]
  - Leukocytosis [None]
  - Muscular weakness [None]
  - Dysstasia [None]
  - Gait inability [None]
  - Diarrhoea [None]
  - Infection [None]
  - Hypophagia [None]
  - Organ failure [None]

NARRATIVE: CASE EVENT DATE: 20230604
